FAERS Safety Report 20012010 (Version 1)
Quarter: 2021Q4

REPORT INFORMATION
  Report Type: Spontaneous
  Country: PL (occurrence: PL)
  Receive Date: 20211029
  Receipt Date: 20211029
  Transmission Date: 20220303
  Serious: Yes (Other)
  Sender: FDA-Public Use
  Company Number: PL-BOEHRINGERINGELHEIM-2021-BI-134063

PATIENT
  Age: 55 Year
  Sex: Female

DRUGS (1)
  1. GILOTRIF [Suspect]
     Active Substance: AFATINIB
     Indication: Lung adenocarcinoma
     Dates: start: 2021

REACTIONS (4)
  - Lung adenocarcinoma [Unknown]
  - Cough [Unknown]
  - Bone pain [Unknown]
  - Dermatitis acneiform [Unknown]
